FAERS Safety Report 8011487 (Version 10)
Quarter: 2013Q3

REPORT INFORMATION
  Report Type: Spontaneous
  Country: CA (occurrence: CA)
  Receive Date: 20110627
  Receipt Date: 20130919
  Transmission Date: 20140515
  Serious: Yes (Hospitalization, Other)
  Sender: FDA-Public Use
  Company Number: CA-ROCHE-GNE320568

PATIENT
  Age: 53 Year
  Sex: Male

DRUGS (5)
  1. XOLAIR [Suspect]
     Indication: ASTHMA
     Dosage: 150 MG, Q4W
     Route: 058
     Dates: start: 20100920
  2. XOLAIR [Suspect]
     Route: 058
     Dates: start: 20101115
  3. XOLAIR [Suspect]
     Route: 058
     Dates: start: 20130107
  4. XOLAIR [Suspect]
     Route: 058
     Dates: start: 20130712
  5. XOLAIR [Suspect]
     Route: 058
     Dates: start: 20130827

REACTIONS (15)
  - Nephrolithiasis [Unknown]
  - Back pain [Not Recovered/Not Resolved]
  - Hyperhidrosis [Unknown]
  - Oedema peripheral [Unknown]
  - Pruritus [Unknown]
  - Malaise [Unknown]
  - Blood pressure systolic increased [Unknown]
  - Hypersensitivity [Not Recovered/Not Resolved]
  - Inappropriate schedule of drug administration [Unknown]
  - Nasal congestion [Unknown]
  - Anosmia [Unknown]
  - Ageusia [Unknown]
  - Rhinorrhoea [Unknown]
  - Asthma [Unknown]
  - Drug ineffective [Unknown]
